FAERS Safety Report 8344963-0 (Version None)
Quarter: 2012Q2

REPORT INFORMATION
  Report Type: 
  Country: None (occurrence: None)
  Receive Date: 20120508
  Receipt Date: 20080102
  Transmission Date: 20120825
  Serious: Yes (Other)
  Sender: FDA-Public Use
  Company Number: US-TEVA-US022028

PATIENT
  Age: 21 Year
  Sex: Male
  Weight: 105 kg

DRUGS (6)
  1. TRISENOX [Suspect]
     Indication: ACUTE PROMYELOCYTIC LEUKAEMIA
     Dosage: 15 MILLIGRAM;
     Route: 042
     Dates: start: 20071203, end: 20071217
  2. TRISENOX [Suspect]
     Dosage: 7.5 MILLIGRAM;
     Route: 042
     Dates: start: 20071219
  3. ELECTROLYTE SUPPLEMENTS [Concomitant]
     Route: 065
  4. MAGNESIUM HYDROXIDE TAB [Concomitant]
     Route: 065
  5. TRISENOX [Suspect]
     Dosage: 15 MILLIGRAM;
     Route: 042
     Dates: start: 20071201
  6. ZOFRAN [Concomitant]
     Indication: NAUSEA
     Route: 065

REACTIONS (3)
  - ELECTROCARDIOGRAM QT PROLONGED [None]
  - TONGUE DISCOLOURATION [None]
  - DYSGEUSIA [None]
